FAERS Safety Report 9856838 (Version 2)
Quarter: 2014Q1

REPORT INFORMATION
  Report Type: Spontaneous
  Country: US (occurrence: US)
  Receive Date: 20140130
  Receipt Date: 20140214
  Transmission Date: 20141002
  Serious: No
  Sender: FDA-Public Use
  Company Number: US-009507513-1401USA013040

PATIENT
  Age: 60 Year
  Sex: Male

DRUGS (6)
  1. PEGINTRON [Suspect]
     Indication: CHRONIC HEPATITIS C
     Dosage: ONCE A WEEK
     Route: 058
     Dates: start: 20131116
  2. REBETOL [Suspect]
     Indication: CHRONIC HEPATITIS C
     Dosage: 2 AM AND PM, BID
     Route: 048
     Dates: start: 20131116
  3. VICTRELIS [Suspect]
     Indication: CHRONIC HEPATITIS C
     Dosage: 4 CAP/3X DAY, Q8H
     Route: 048
     Dates: start: 20131214
  4. NITROPATCH [Concomitant]
     Dosage: 0.1 GM/HR Q 12 HE
  5. LISINOPRIL [Concomitant]
     Dosage: 1 DF, QD
     Route: 048
  6. CARVEDILOL [Concomitant]
     Dosage: 1 DF, BID

REACTIONS (7)
  - Renal disorder [Unknown]
  - Rash erythematous [Unknown]
  - Nausea [Unknown]
  - Irritability [Unknown]
  - Nervousness [Unknown]
  - Rash pruritic [Unknown]
  - Rash [Recovered/Resolved]
